FAERS Safety Report 5912912-8 (Version None)
Quarter: 2008Q4

REPORT INFORMATION
  Report Type: 
  Country: None (occurrence: None)
  Receive Date: 20081008
  Receipt Date: 20080926
  Transmission Date: 20090506
  Serious: Yes (Hospitalization, Other)
  Sender: FDA-Public Use
  Company Number: US-PFIZER INC-2008075581

PATIENT
  Sex: Female
  Weight: 72.1 kg

DRUGS (1)
  1. CHANTIX [Suspect]
     Indication: SMOKING CESSATION THERAPY
     Route: 048
     Dates: start: 20080812, end: 20080906

REACTIONS (11)
  - ABDOMINAL DISCOMFORT [None]
  - ASTHENIA [None]
  - CLOSTRIDIUM DIFFICILE COLITIS [None]
  - DEHYDRATION [None]
  - DIABETES MELLITUS [None]
  - DIARRHOEA [None]
  - DIZZINESS [None]
  - MALAISE [None]
  - MUSCLE STRAIN [None]
  - NAUSEA [None]
  - SLEEP DISORDER [None]
